FAERS Safety Report 11069336 (Version 1)
Quarter: 2015Q2

REPORT INFORMATION
  Report Type: Spontaneous
  Country: CZ (occurrence: CZ)
  Receive Date: 20150427
  Receipt Date: 20150427
  Transmission Date: 20150821
  Serious: Yes (Death)
  Sender: FDA-Public Use
  Company Number: CZ-CELGENE-217-21880-13044882

PATIENT

DRUGS (1)
  1. REVLIMID [Suspect]
     Active Substance: LENALIDOMIDE
     Indication: PLASMA CELL MYELOMA
     Dosage: 10-25MG
     Route: 048

REACTIONS (15)
  - Neuropathy peripheral [Fatal]
  - Infection [Fatal]
  - Asthenia [Fatal]
  - Decreased appetite [Fatal]
  - Disease progression [Unknown]
  - Thrombocytopenia [Fatal]
  - Diarrhoea [Fatal]
  - Constipation [Fatal]
  - Anaemia [Fatal]
  - Fatigue [Fatal]
  - Thrombosis [Fatal]
  - Embolism [Fatal]
  - Nausea [Fatal]
  - Neutropenia [Fatal]
  - Vomiting [Fatal]
